FAERS Safety Report 6821792-8 (Version None)
Quarter: 2010Q3

REPORT INFORMATION
  Report Type: 
  Country: None (occurrence: None)
  Receive Date: 20100708
  Receipt Date: 20100217
  Transmission Date: 20110219
  Serious: Yes (Other)
  Sender: FDA-Public Use
  Company Number: US-ASTRAZENECA-2008UW27635

PATIENT
  Age: 18696 Day
  Sex: Male
  Weight: 113.4 kg

DRUGS (17)
  1. SEROQUEL [Suspect]
     Indication: PSYCHOTIC DISORDER
     Route: 048
     Dates: start: 20030321, end: 20040321
  2. SEROQUEL [Suspect]
     Indication: INSOMNIA
     Route: 048
     Dates: start: 20030321, end: 20040321
  3. SEROQUEL [Suspect]
     Indication: SCHIZOPHRENIA
     Route: 048
     Dates: start: 20030321, end: 20040321
  4. SEROQUEL [Suspect]
     Dosage: 75 TO 300 MG
     Route: 048
     Dates: start: 20030814
  5. SEROQUEL [Suspect]
     Dosage: 75 TO 300 MG
     Route: 048
     Dates: start: 20030814
  6. SEROQUEL [Suspect]
     Dosage: 75 TO 300 MG
     Route: 048
     Dates: start: 20030814
  7. ABILIFY [Concomitant]
     Dates: start: 20080101
  8. FOSINOPRIL SODIUM [Concomitant]
  9. TRIAMTERENE AND HYDROCHLOROTHIAZIDE [Concomitant]
     Dosage: ONE TABLET EVERY MORNING
  10. LORATADINE [Concomitant]
     Indication: MULTIPLE ALLERGIES
  11. OMEPRAZOLE [Concomitant]
  12. RISPERIDONE [Concomitant]
     Dosage: 2 TO 6 MG
     Route: 048
  13. SERTRALINE HCL [Concomitant]
     Route: 048
  14. SIMVASTATIN [Concomitant]
     Route: 048
     Dates: start: 20030814
  15. RABEPRAZOLE SODIUM [Concomitant]
     Route: 048
     Dates: start: 20030814
  16. LISINOPRIL [Concomitant]
     Route: 048
  17. TRAZODONE HYDROCHLORIDE [Concomitant]
     Dates: start: 20070718

REACTIONS (2)
  - DIABETES MELLITUS [None]
  - PERIPHERAL SENSORY NEUROPATHY [None]
